FAERS Safety Report 6721285-2 (Version None)
Quarter: 2010Q2

REPORT INFORMATION
  Report Type: 
  Country: None (occurrence: None)
  Receive Date: 20100512
  Receipt Date: 20100429
  Transmission Date: 20101027
  Serious: Yes (Hospitalization)
  Sender: FDA-Public Use
  Company Number: PHFR2010GB00492

PATIENT
  Sex: Male

DRUGS (3)
  1. CLOZARIL [Suspect]
     Indication: SCHIZOPHRENIA
     Dosage: UNK
     Route: 048
     Dates: start: 20081229
  2. CLOZARIL [Suspect]
     Dosage: 50 MG, UNK
     Route: 048
     Dates: start: 20100318, end: 20100408
  3. CLOZARIL [Suspect]
     Dosage: 100 MG MANE, 300 MG NOCTE
     Route: 048

REACTIONS (2)
  - TREATMENT NONCOMPLIANCE [None]
  - VITAMIN B12 DEFICIENCY [None]
